FAERS Safety Report 7682064-5 (Version None)
Quarter: 2011Q3

REPORT INFORMATION
  Report Type: 
  Country: None (occurrence: None)
  Receive Date: 20110810
  Receipt Date: 20110801
  Transmission Date: 20111222
  Serious: Yes (Other)
  Sender: FDA-Public Use
  Company Number: 2011SP031593

PATIENT
  Age: 76 Year
  Sex: Male

DRUGS (2)
  1. BETAMETHASONE SODIUM PHOSPHATE [Suspect]
     Indication: CONJUNCTIVITIS
     Dosage: OPH
     Route: 047
     Dates: start: 20081101
  2. OFLOXACIN [Concomitant]

REACTIONS (2)
  - EXTRANODAL MARGINAL ZONE B-CELL LYMPHOMA (MALT TYPE) [None]
  - CONJUNCTIVITIS [None]
